FAERS Safety Report 18637533 (Version 1)
Quarter: 2020Q4

REPORT INFORMATION
  Report Type: Spontaneous
  Country: FR (occurrence: FR)
  Receive Date: 20201218
  Receipt Date: 20201218
  Transmission Date: 20210114
  Serious: Yes (Death, Hospitalization, Other)
  Sender: FDA-Public Use
  Company Number: FR-MYLANLABS-2020M1102653

PATIENT
  Sex: Female

DRUGS (10)
  1. PARACETAMOL [Suspect]
     Active Substance: ACETAMINOPHEN
     Indication: BACK PAIN
     Dosage: UNK
  2. PARACETAMOL [Suspect]
     Active Substance: ACETAMINOPHEN
     Indication: FEELING HOT
  3. CODEINE [Suspect]
     Active Substance: CODEINE
     Indication: BACK PAIN
  4. GENTAMYCIN                         /00047101/ [Concomitant]
     Active Substance: GENTAMICIN
     Indication: ANTIBIOTIC PROPHYLAXIS
     Dosage: UNK
  5. CEFOTAXIME [Suspect]
     Active Substance: CEFOTAXIME SODIUM
     Indication: ABDOMINAL SEPSIS
     Dosage: UNK
  6. CODEINE [Suspect]
     Active Substance: CODEINE
     Indication: ABDOMINAL PAIN
  7. CLINDAMYCIN. [Suspect]
     Active Substance: CLINDAMYCIN
     Indication: BETA HAEMOLYTIC STREPTOCOCCAL INFECTION
     Dosage: UNK
  8. METRONIDAZOLE. [Suspect]
     Active Substance: METRONIDAZOLE
     Indication: ABDOMINAL SEPSIS
     Dosage: UNK
  9. CODEINE [Suspect]
     Active Substance: CODEINE
     Indication: FEELING HOT
     Dosage: UNK
  10. PARACETAMOL [Suspect]
     Active Substance: ACETAMINOPHEN
     Indication: ABDOMINAL PAIN

REACTIONS (13)
  - Drug resistance [Unknown]
  - Hyperleukocytosis [Unknown]
  - Pain [Unknown]
  - Abdominal sepsis [Unknown]
  - Renal failure [Unknown]
  - Septic shock [Fatal]
  - Condition aggravated [Fatal]
  - Disseminated intravascular coagulation [Unknown]
  - Toxic shock syndrome streptococcal [Fatal]
  - Necrosis [Unknown]
  - Multiple organ dysfunction syndrome [Fatal]
  - Respiratory failure [Unknown]
  - Neutropenia [Unknown]
